FAERS Safety Report 5848398-1 (Version None)
Quarter: 2008Q3

REPORT INFORMATION
  Report Type: 
  Country: None (occurrence: None)
  Receive Date: 20080818
  Receipt Date: 20080623
  Transmission Date: 20090109
  Serious: No
  Sender: FDA-Public Use
  Company Number: US-BAYER-200825425NA

PATIENT
  Age: 37 Year
  Sex: Male

DRUGS (5)
  1. BETASERON [Suspect]
     Indication: MULTIPLE SCLEROSIS
     Dosage: TOTAL DAILY DOSE: 8 MIU
     Dates: start: 20080301
  2. FLEXERIL [Concomitant]
  3. MULTI-VITAMIN [Concomitant]
  4. BACLOFEN [Concomitant]
     Dates: start: 20080301
  5. CYCLOBENZAPRINE HCL [Concomitant]
     Dates: start: 20080301

REACTIONS (8)
  - ABASIA [None]
  - AMNESIA [None]
  - CANDIDIASIS [None]
  - CONSTIPATION [None]
  - INSOMNIA [None]
  - MUSCULAR WEAKNESS [None]
  - PAIN IN EXTREMITY [None]
  - TREMOR [None]
